FAERS Safety Report 17536681 (Version 1)
Quarter: 2020Q1

REPORT INFORMATION
  Report Type: Spontaneous
  Country: GB (occurrence: GB)
  Receive Date: 20200313
  Receipt Date: 20200313
  Transmission Date: 20200409
  Serious: Yes (Other)
  Sender: FDA-Public Use
  Company Number: GB-TEVA-2020-GB-1199493

PATIENT
  Age: 41 Year
  Sex: Female

DRUGS (3)
  1. FOLIC ACID. [Concomitant]
     Active Substance: FOLIC ACID
     Dosage: 10 MG
  2. METHOTREXATE. [Suspect]
     Active Substance: METHOTREXATE
     Dosage: WEEKS 2-4. 10 MG
  3. METHOTREXATE. [Suspect]
     Active Substance: METHOTREXATE
     Dosage: FIRST WEEK. 2.5 MG

REACTIONS (3)
  - Palpitations [Not Recovered/Not Resolved]
  - Heart rate increased [Not Recovered/Not Resolved]
  - Dizziness [Not Recovered/Not Resolved]

NARRATIVE: CASE EVENT DATE: 20200122
